FAERS Safety Report 6889941-3 (Version None)
Quarter: 2010Q3

REPORT INFORMATION
  Report Type: 
  Country: None (occurrence: None)
  Receive Date: 20100730
  Receipt Date: 20080620
  Transmission Date: 20110219
  Serious: No
  Sender: FDA-Public Use
  Company Number: US-PFIZER INC-2008052479

PATIENT
  Sex: Female
  Weight: 64.545 kg

DRUGS (5)
  1. LIPITOR [Suspect]
     Indication: BLOOD CHOLESTEROL
     Dates: start: 20080501
  2. HYDROCHLOROTHIAZIDE [Concomitant]
  3. ACETYLSALICYLIC ACID SRT [Concomitant]
  4. POTASSIUM [Concomitant]
  5. CLONIDINE [Concomitant]

REACTIONS (2)
  - FATIGUE [None]
  - MUSCULOSKELETAL DISCOMFORT [None]
